FAERS Safety Report 6700629-1 (Version None)
Quarter: 2010Q2

REPORT INFORMATION
  Report Type: 
  Country: None (occurrence: None)
  Receive Date: 20100428
  Receipt Date: 20100416
  Transmission Date: 20101027
  Serious: Yes (Hospitalization)
  Sender: FDA-Public Use
  Company Number: PHHY2009FR47175

PATIENT
  Sex: Male
  Weight: 74 kg

DRUGS (5)
  1. NEORAL [Suspect]
     Indication: LIVER TRANSPLANT
     Dosage: 50 MG, BID
     Route: 048
  2. EVEROLIMUS [Concomitant]
     Indication: TRANSPLANT REJECTION
     Dosage: 2 MG, DAILY
     Dates: start: 20090415
  3. TACROLIMUS [Concomitant]
     Indication: TRANSPLANT REJECTION
     Dosage: 2 MG, DAILY
     Dates: start: 20090318, end: 20090718
  4. PREDNISONE [Concomitant]
     Indication: TRANSPLANT REJECTION
     Dosage: 2 MG, DAILY
     Dates: start: 20090318, end: 20091019
  5. DELURSAN [Concomitant]
     Indication: CHOLESTASIS
     Dosage: 750 MG, DAILY
     Dates: start: 20090326

REACTIONS (2)
  - BLOOD ALCOHOL INCREASED [None]
  - PERITONEAL DISORDER [None]
